FAERS Safety Report 6916302-0 (Version None)
Quarter: 2010Q3

REPORT INFORMATION
  Report Type: 
  Country: None (occurrence: None)
  Receive Date: 20100810
  Receipt Date: 20100729
  Transmission Date: 20110219
  Serious: Yes (Other)
  Sender: FDA-Public Use
  Company Number: US-PFIZER INC-2006133133

PATIENT
  Sex: Male
  Weight: 109 kg

DRUGS (15)
  1. TIKOSYN [Suspect]
     Indication: ATRIAL FIBRILLATION
     Dosage: 0.25 MG, 2X/DAY
     Route: 048
     Dates: start: 20030301, end: 20080101
  2. CEFDINIR [Concomitant]
     Indication: URINARY TRACT INFECTION
     Dosage: 300 MG, 2X/DAY
     Dates: start: 20060101, end: 20060101
  3. WARFARIN SODIUM [Concomitant]
     Dosage: 6 EVERY 1 WEEKS
  4. WARFARIN SODIUM [Concomitant]
  5. AVODART [Concomitant]
  6. CRANBERRY [Concomitant]
  7. DIOVAN [Concomitant]
  8. FLOMAX [Concomitant]
  9. FOLIC ACID [Concomitant]
  10. HYDROCHLOROTHIAZIDE [Concomitant]
  11. METOPROLOL [Concomitant]
  12. GLIPIZIDE [Concomitant]
  13. LIPITOR [Concomitant]
     Dosage: UNK
     Route: 048
  14. HUMULIN R [Concomitant]
     Dosage: UNK
  15. METFORMIN [Concomitant]
     Dosage: UNK

REACTIONS (4)
  - DIABETES MELLITUS INADEQUATE CONTROL [None]
  - DRUG INEFFECTIVE [None]
  - PARAESTHESIA [None]
  - URINARY TRACT INFECTION [None]
